FAERS Safety Report 5119153-5 (Version None)
Quarter: 2006Q3

REPORT INFORMATION
  Report Type: 
  Country: None (occurrence: None)
  Receive Date: 20060929
  Receipt Date: 20060929
  Transmission Date: 20061208
  Serious: No
  Sender: FDA-Public Use
  Company Number: None

PATIENT
  Age: 45 Year
  Sex: Female
  Weight: 57.6068 kg

DRUGS (1)
  1. KETEK [Suspect]
     Indication: BRONCHITIS
     Dosage: 2 PILLS 1X DAY FOR 5 DAY PO
     Route: 048
     Dates: start: 20060829, end: 20060902

REACTIONS (3)
  - EXTRAOCULAR MUSCLE PARESIS [None]
  - VISION BLURRED [None]
  - VISUAL ACUITY REDUCED [None]
